FAERS Safety Report 17359900 (Version 8)
Quarter: 2020Q4

REPORT INFORMATION
  Report Type: Spontaneous
  Country: DE (occurrence: DE)
  Receive Date: 20200203
  Receipt Date: 20201022
  Transmission Date: 20210113
  Serious: Yes (Life-Threatening, Hospitalization, Other)
  Sender: FDA-Public Use
  Company Number: DE-AUROBINDO-AUR-APL-2020-004368

PATIENT
  Age: 63 Year
  Sex: Female
  Weight: 73 kg

DRUGS (13)
  1. KISQALI [Suspect]
     Active Substance: RIBOCICLIB
     Dosage: 600 MILLIGRAM (SCHEMA 21 DAYS INTAKE, 7 DAYS PAUSE)
     Route: 048
     Dates: start: 20191106, end: 20191123
  2. ANASTROZOLE. [Suspect]
     Active Substance: ANASTROZOLE
     Indication: BREAST CANCER METASTATIC
     Dosage: 1 MILLIGRAM, ONCE A DAY
     Route: 048
     Dates: start: 20191106, end: 20191122
  3. PALBOCICLIB [Concomitant]
     Active Substance: PALBOCICLIB
     Indication: PRODUCT USED FOR UNKNOWN INDICATION
     Dosage: UNK
     Route: 065
  4. XGEVA [Concomitant]
     Active Substance: DENOSUMAB
     Indication: PRODUCT USED FOR UNKNOWN INDICATION
     Dosage: 120 MILLIGRAM
     Route: 065
     Dates: start: 20200117
  5. NOVALGIN [Concomitant]
     Indication: PAIN
     Dosage: 500 MILLIGRAM, FOUR TIMES/DAY (2000 MG ONCE A DAY)
     Route: 048
     Dates: start: 20191016
  6. DEXAMETHASONE. [Concomitant]
     Active Substance: DEXAMETHASONE
     Indication: PRODUCT USED FOR UNKNOWN INDICATION
     Dosage: 0.5 DOSAGE FORM, TWO TIMES A DAY (1 DOSAGE FORM ONCE A DAY)
     Route: 048
     Dates: start: 20191016
  7. FULVESTRANT. [Suspect]
     Active Substance: FULVESTRANT
     Indication: BREAST CANCER METASTATIC
     Dosage: 250 MILLIGRAM
     Route: 030
     Dates: start: 20200106, end: 20200106
  8. PIPERACILLIN AND TAZOBACTAM [Suspect]
     Active Substance: PIPERACILLIN SODIUM\TAZOBACTAM SODIUM
     Indication: PRODUCT USED FOR UNKNOWN INDICATION
     Dosage: 3 DOSAGE FORM, 3 TIMES A DAY
     Route: 065
     Dates: start: 20191124, end: 20191129
  9. KISQALI [Suspect]
     Active Substance: RIBOCICLIB
     Indication: BREAST CANCER METASTATIC
     Dosage: 600 MILLIGRAM (SCHEMA 21 DAYS INTAKE, 7 DAYS PAUSE)
     Route: 048
     Dates: start: 20191106, end: 20191122
  10. PANTOPRAZOLE [Concomitant]
     Active Substance: PANTOPRAZOLE
     Indication: PROPHYLAXIS
     Dosage: 40 MILLIGRAM, ONCE A DAY
     Route: 048
     Dates: start: 20191016
  11. ANASTROZOLE. [Suspect]
     Active Substance: ANASTROZOLE
     Dosage: 1 MILLIGRAM, ONCE A DAY
     Route: 048
     Dates: start: 20191106, end: 20191123
  12. OXYCODONE [Concomitant]
     Active Substance: OXYCODONE
     Indication: PAIN
     Dosage: 10 MILLIGRAM, ONCE A DAY
     Route: 048
     Dates: start: 20191030
  13. MACROGOL [Concomitant]
     Active Substance: POLYETHYLENE GLYCOLS
     Indication: CONSTIPATION
     Dosage: 1 DOSAGE FORM, ONCE A DAY
     Route: 048
     Dates: start: 20191023

REACTIONS (23)
  - Hypersensitivity [Recovered/Resolved]
  - Diarrhoea [Recovered/Resolved]
  - Nausea [Recovered/Resolved]
  - Pyrexia [Recovered/Resolved]
  - Abdominal wall cyst [Unknown]
  - Dysphagia [Recovered/Resolved]
  - Fatigue [Unknown]
  - Second primary malignancy [Unknown]
  - Thrombosis [Recovering/Resolving]
  - Peritoneal neoplasm [Unknown]
  - Pleural effusion [Unknown]
  - Pruritus [Recovered/Resolved]
  - General physical health deterioration [Recovering/Resolving]
  - Ascites [Unknown]
  - Liver function test increased [Recovering/Resolving]
  - Rash [Unknown]
  - Vomiting [Recovered/Resolved]
  - Pancytopenia [Recovered/Resolved]
  - Haemoglobin decreased [Unknown]
  - Acute hepatic failure [Unknown]
  - Thrombocytopenia [Recovered/Resolved]
  - Ovarian cancer [Unknown]
  - Retroperitoneal cancer [Unknown]

NARRATIVE: CASE EVENT DATE: 20191112
